FAERS Safety Report 23788887 (Version 3)
Quarter: 2024Q3

REPORT INFORMATION
  Report Type: Report from Study
  Country: BE (occurrence: BE)
  Receive Date: 20240426
  Receipt Date: 20240826
  Transmission Date: 20241017
  Serious: Yes (Hospitalization, Other)
  Sender: JOHNSON AND JOHNSON
  Company Number: BE-JNJFOC-20220925412

PATIENT
  Age: 3 Decade
  Sex: Female
  Weight: 43 kg

DRUGS (19)
  1. MACITENTAN [Suspect]
     Active Substance: MACITENTAN
     Indication: Pulmonary hypertension
     Route: 048
     Dates: start: 20210114
  2. MACITENTAN [Suspect]
     Active Substance: MACITENTAN
     Indication: Pulmonary hypertension
     Route: 065
     Dates: start: 20210502, end: 20211102
  3. SELEXIPAG [Suspect]
     Active Substance: SELEXIPAG
     Indication: Pulmonary hypertension
     Route: 048
     Dates: start: 20210606, end: 20210613
  4. SELEXIPAG [Suspect]
     Active Substance: SELEXIPAG
     Route: 048
     Dates: start: 20210613, end: 20210620
  5. SELEXIPAG [Suspect]
     Active Substance: SELEXIPAG
     Route: 048
     Dates: start: 20210620, end: 20210706
  6. SELEXIPAG [Suspect]
     Active Substance: SELEXIPAG
     Route: 048
     Dates: start: 20210706, end: 20210716
  7. SELEXIPAG [Suspect]
     Active Substance: SELEXIPAG
     Route: 048
     Dates: start: 20210716, end: 20210927
  8. SELEXIPAG [Suspect]
     Active Substance: SELEXIPAG
     Route: 048
     Dates: start: 20230307, end: 20230313
  9. SELEXIPAG [Suspect]
     Active Substance: SELEXIPAG
     Route: 048
     Dates: start: 20210608, end: 20210928
  10. SILDENAFIL [Concomitant]
     Active Substance: SILDENAFIL
     Indication: Pulmonary hypertension
     Route: 048
     Dates: start: 20200708
  11. SILDENAFIL [Concomitant]
     Active Substance: SILDENAFIL
     Route: 048
     Dates: start: 20230810
  12. BILASTINE [Concomitant]
     Active Substance: BILASTINE
     Indication: Atopy
     Dates: start: 20200811
  13. BILASTINE [Concomitant]
     Active Substance: BILASTINE
     Indication: Asthma
  14. OXYGEN [Concomitant]
     Active Substance: OXYGEN
     Indication: Pulmonary hypertension
     Dates: start: 20210519
  15. BECLOMETHASONE DIPROPIONATE\FORMOTEROL FUMARATE [Concomitant]
     Active Substance: BECLOMETHASONE DIPROPIONATE\FORMOTEROL FUMARATE
     Indication: Pulmonary hypertension
  16. REVATIO [Concomitant]
     Active Substance: SILDENAFIL CITRATE
     Indication: Pulmonary hypertension
     Dates: start: 20200708
  17. PHENPROCOUMON [Concomitant]
     Active Substance: PHENPROCOUMON
     Indication: Pulmonary hypertension
     Dates: start: 20211012
  18. PHENPROCOUMON [Concomitant]
     Active Substance: PHENPROCOUMON
     Indication: Transient ischaemic attack
  19. MIRENA [Concomitant]
     Active Substance: LEVONORGESTREL
     Indication: Contraception
     Dates: start: 2016

REACTIONS (20)
  - Thrombocytopenia [Unknown]
  - Supraventricular tachycardia [Not Recovered/Not Resolved]
  - Nausea [Not Recovered/Not Resolved]
  - Vertigo [Not Recovered/Not Resolved]
  - Abdominal pain upper [Unknown]
  - COVID-19 [Recovered/Resolved]
  - Vulvovaginal candidiasis [Recovered/Resolved]
  - Micturition urgency [Not Recovered/Not Resolved]
  - Chest pain [Not Recovered/Not Resolved]
  - Palpitations [Not Recovered/Not Resolved]
  - Respiratory tract infection [Recovered/Resolved]
  - Hypoglycaemia [Recovered/Resolved]
  - Cystitis [Recovered/Resolved]
  - Dizziness [Unknown]
  - Extrasystoles [Not Recovered/Not Resolved]
  - Dyspepsia [Not Recovered/Not Resolved]
  - Ovarian cyst [Not Recovered/Not Resolved]
  - Decreased appetite [Unknown]
  - Abdominal pain upper [Unknown]
  - Diarrhoea [Unknown]

NARRATIVE: CASE EVENT DATE: 20220103
